FAERS Safety Report 4529726-6 (Version None)
Quarter: 2004Q4

REPORT INFORMATION
  Report Type: 
  Country: None (occurrence: None)
  Receive Date: 20041215
  Receipt Date: 20041215
  Transmission Date: 20050328
  Serious: Yes (Hospitalization)
  Sender: FDA-Public Use
  Company Number: None

PATIENT
  Age: 88 Year
  Sex: Female

DRUGS (7)
  1. SEROQUEL [Suspect]
     Dosage: SEE IMAGE
     Route: 048
  2. SINEMET [Concomitant]
  3. SINEMET CR [Concomitant]
  4. COGENTIN [Concomitant]
  5. AIVAN [Concomitant]
  6. PROZAC [Concomitant]
  7. GLUCOSAMIN [Concomitant]

REACTIONS (2)
  - CONFUSIONAL STATE [None]
  - SEDATION [None]
